FAERS Safety Report 10155735 (Version 2)
Quarter: 2014Q2

REPORT INFORMATION
  Report Type: Spontaneous
  Country: IT (occurrence: IT)
  Receive Date: 20140506
  Receipt Date: 20140520
  Transmission Date: 20141212
  Serious: Yes (Hospitalization)
  Sender: FDA-Public Use
  Company Number: IT-BAYER-2014-063433

PATIENT
  Age: 45 Year
  Sex: Male

DRUGS (1)
  1. ACETYLSALICYLIC ACID (} 100 MG) [Suspect]
     Indication: HEADACHE
     Dosage: 1 DF, ONCE
     Route: 048
     Dates: start: 20140312, end: 20140312

REACTIONS (9)
  - Cold sweat [Unknown]
  - Asthenia [Unknown]
  - Melaena [Unknown]
  - Haematemesis [Unknown]
  - Abdominal distension [Unknown]
  - Vomiting [Unknown]
  - Hiatus hernia [Unknown]
  - Oesophagitis [Unknown]
  - Oesophageal ulcer [Unknown]
